FAERS Safety Report 15178572 (Version 1)
Quarter: 2018Q3

REPORT INFORMATION
  Report Type: Spontaneous
  Country: US (occurrence: US)
  Receive Date: 20180722
  Receipt Date: 20180722
  Transmission Date: 20181010
  Serious: No
  Sender: FDA-Public Use
  Company Number: US-GALDERMA-US18012140

PATIENT
  Age: 38 Year
  Sex: Female

DRUGS (5)
  1. PROACTIV MD DAILY OIL CONTROL SPF 30 [Suspect]
     Active Substance: AVOBENZONE\OCTISALATE\OCTOCRYLENE
     Indication: CHEMICAL PEEL OF SKIN
     Route: 061
     Dates: start: 20180122, end: 20180211
  2. TRIACTRIN [Concomitant]
  3. PROACTIV MD ADAPALENE ACNE TREATMENT [Suspect]
     Active Substance: ADAPALENE
     Indication: CHEMICAL PEEL OF SKIN
     Dosage: 0.1%
     Route: 061
     Dates: start: 20180122, end: 20180211
  4. PROACTIV MD BALANCING TONER [Concomitant]
     Active Substance: COSMETICS
     Indication: CHEMICAL PEEL OF SKIN
     Route: 061
     Dates: start: 20180122, end: 20180211
  5. PROACTIV MD DEEP CLEANSING FACE WASH [Concomitant]
     Active Substance: COSMETICS
     Indication: CHEMICAL PEEL OF SKIN
     Route: 061
     Dates: start: 20180122, end: 20180211

REACTIONS (2)
  - Rash [Not Recovered/Not Resolved]
  - Product use in unapproved indication [Recovered/Resolved]

NARRATIVE: CASE EVENT DATE: 20180122
